FAERS Safety Report 4322183-4 (Version None)
Quarter: 2004Q1

REPORT INFORMATION
  Report Type: 
  Country: None (occurrence: None)
  Receive Date: 20040319
  Receipt Date: 20040309
  Transmission Date: 20041129
  Serious: Yes (Death)
  Sender: FDA-Public Use
  Company Number: 2004202904US

PATIENT
  Sex: Male

DRUGS (6)
  1. EMCYT [Suspect]
     Indication: PROSTATE CANCER METASTATIC
     Dosage: 140 MG, TID, ORAL
     Route: 048
  2. PACLITAXEL [Suspect]
     Indication: PROSTATE CANCER METASTATIC
     Dosage: 90 MG/M2, WEEKLY X 3, IV
     Route: 042
  3. WARFARIN SODIUM [Concomitant]
  4. DEXAMETHASONE [Concomitant]
  5. DIPHENHYDRAMINE HCL [Concomitant]
  6. H2 BLOCKER [Concomitant]

REACTIONS (1)
  - PNEUMONIA [None]
